FAERS Safety Report 19746419 (Version 1)
Quarter: 2021Q3

REPORT INFORMATION
  Report Type: Spontaneous
  Country: BR (occurrence: BR)
  Receive Date: 20210825
  Receipt Date: 20210825
  Transmission Date: 20211014
  Serious: Yes (Other)
  Sender: FDA-Public Use
  Company Number: BR-TAKEDA-2021TUS052827

PATIENT
  Sex: Male

DRUGS (1)
  1. ELAPRASE [Suspect]
     Active Substance: IDURSULFASE
     Indication: PRODUCT USED FOR UNKNOWN INDICATION
     Dosage: UNK
     Route: 065

REACTIONS (10)
  - Unevaluable event [Unknown]
  - Fatigue [Unknown]
  - Pain in extremity [Unknown]
  - Hypersensitivity [Unknown]
  - Arthropathy [Unknown]
  - Pain [Unknown]
  - Intervertebral disc degeneration [Unknown]
  - Dyspnoea [Unknown]
  - Pruritus [Unknown]
  - Deafness [Unknown]
